FAERS Safety Report 20528994 (Version 1)
Quarter: 2022Q1

REPORT INFORMATION
  Report Type: Report from Study
  Country: CN (occurrence: CN)
  Receive Date: 20220228
  Receipt Date: 20220228
  Transmission Date: 20220423
  Serious: Yes (Other)
  Sender: FDA-Public Use
  Company Number: CN-JNJFOC-20220237633

PATIENT

DRUGS (1)
  1. TOPIRAMATE [Suspect]
     Active Substance: TOPIRAMATE
     Indication: Epilepsy
     Route: 048

REACTIONS (57)
  - Flat anterior chamber of eye [Unknown]
  - Acute myopia [Unknown]
  - Blindness transient [Unknown]
  - Choroidal detachment [Unknown]
  - Angle closure glaucoma [Unknown]
  - Glaucoma [Unknown]
  - Iris adhesions [Unknown]
  - Iris atrophy [Unknown]
  - Blindness [Unknown]
  - Choroidal effusion [Unknown]
  - Macular hole [Unknown]
  - Optic atrophy [Unknown]
  - Chorioretinopathy [Unknown]
  - Macular detachment [Unknown]
  - Macular fibrosis [Unknown]
  - Serous retinal detachment [Unknown]
  - Exophthalmos [Unknown]
  - Iridocyclitis [Unknown]
  - Vitritis [Unknown]
  - Macular oedema [Unknown]
  - Uveitis [Unknown]
  - Retinopathy [Unknown]
  - Retinal detachment [Unknown]
  - Narrow anterior chamber angle [Unknown]
  - Blepharospasm [Unknown]
  - Mydriasis [Unknown]
  - Diplopia [Unknown]
  - Photopsia [Unknown]
  - Vision blurred [Unknown]
  - Altered visual depth perception [Unknown]
  - Visual acuity reduced [Unknown]
  - Visual impairment [Unknown]
  - Amblyopia [Unknown]
  - Night blindness [Unknown]
  - Maculopathy [Unknown]
  - Conjunctival hyperaemia [Unknown]
  - Conjunctival oedema [Unknown]
  - Abnormal sensation in eye [Unknown]
  - Myopia [Unknown]
  - Iris disorder [Unknown]
  - Ciliary body disorder [Unknown]
  - Eyelid function disorder [Unknown]
  - Excessive eye blinking [Unknown]
  - Pupils unequal [Unknown]
  - Ciliary muscle spasm [Unknown]
  - Metamorphopsia [Unknown]
  - Astigmatism [Unknown]
  - Hypermetropia [Unknown]
  - Pseudomyopia [Unknown]
  - Corneal oedema [Unknown]
  - Photophobia [Unknown]
  - Asthenopia [Unknown]
  - Retinal disorder [Unknown]
  - Lens disorder [Unknown]
  - Chorioretinal disorder [Unknown]
  - Ocular discomfort [Unknown]
  - Eye pain [Unknown]
